FAERS Safety Report 16254817 (Version 4)
Quarter: 2019Q2

REPORT INFORMATION
  Report Type: Spontaneous
  Country: US (occurrence: US)
  Receive Date: 20190430
  Receipt Date: 20190617
  Transmission Date: 20190711
  Serious: Yes (Life-Threatening, Other)
  Sender: FDA-Public Use
  Company Number: US-AXELLIA-002417

PATIENT
  Age: 23 Year
  Sex: Male

DRUGS (3)
  1. VANCOMYCIN [Suspect]
     Active Substance: VANCOMYCIN
     Indication: PERITONEAL DIALYSIS COMPLICATION
     Route: 033
  2. GLUCOSE [Concomitant]
     Active Substance: DEXTROSE
     Dosage: STRENGTH-1.5 % (OVERNIGHT )
  3. CEFTAZIDIME/CEFTAZIDIME PENTAHYDRATE [Suspect]
     Active Substance: CEFTAZIDIME
     Indication: PERITONEAL DIALYSIS COMPLICATION
     Dosage: AS PER INSTITUTIONAL PROTOCOL
     Route: 033

REACTIONS (2)
  - Appendicitis [Recovered/Resolved]
  - Noninfectious peritonitis [Recovered/Resolved]
